FAERS Safety Report 20123016 (Version 2)
Quarter: 2023Q1

REPORT INFORMATION
  Report Type: Spontaneous
  Country: JP (occurrence: JP)
  Receive Date: 20211129
  Receipt Date: 20230112
  Transmission Date: 20230417
  Serious: Yes (Other)
  Sender: FDA-Public Use
  Company Number: JP-SA-2021SA391034

PATIENT
  Age: 78 Year
  Sex: Male

DRUGS (1)
  1. TAXOTERE [Suspect]
     Active Substance: DOCETAXEL
     Indication: Prostate cancer recurrent
     Dosage: UNK
     Route: 041
     Dates: start: 2021

REACTIONS (6)
  - Acquired factor V deficiency [Recovered/Resolved]
  - Melaena [Recovered/Resolved]
  - Haematuria [Recovered/Resolved]
  - Haemorrhagic diathesis [Recovered/Resolved]
  - Anaemia [Recovered/Resolved]
  - Pallor [Recovered/Resolved]

NARRATIVE: CASE EVENT DATE: 20210101
